FAERS Safety Report 6999841-6 (Version None)
Quarter: 2010Q3

REPORT INFORMATION
  Report Type: 
  Country: None (occurrence: None)
  Receive Date: 20100920
  Receipt Date: 20080218
  Transmission Date: 20110219
  Serious: Yes (Other)
  Sender: FDA-Public Use
  Company Number: US-ASTRAZENECA-2007UW27801

PATIENT
  Age: 471 Month
  Sex: Female
  Weight: 97.5 kg

DRUGS (25)
  1. SEROQUEL [Suspect]
     Indication: BIPOLAR DISORDER
     Dosage: 50 MG, 100 MG, 200 MG, 300 MG, AND 800 MG
     Route: 048
     Dates: start: 20040601, end: 20071001
  2. SEROQUEL [Suspect]
     Dosage: 100 MG-700 MG
     Route: 048
     Dates: start: 20040610
  3. ABILIFY [Concomitant]
     Dosage: TOOK FOR 1 WEEK
     Dates: start: 20041201, end: 20041201
  4. ABILIFY [Concomitant]
     Dates: start: 20041208
  5. RISPERDAL [Concomitant]
  6. KLONOPIN [Concomitant]
  7. LITHIUM [Concomitant]
     Dates: start: 20040610
  8. LITHIUM [Concomitant]
  9. WELLBUTRIN [Concomitant]
     Dates: start: 20040101
  10. INDERAL [Concomitant]
     Indication: TACHYCARDIA
     Dates: start: 20000113
  11. CLARITIN [Concomitant]
     Dates: start: 19990723
  12. ALBUTEROL [Concomitant]
     Dosage: AS NECESSARY
     Dates: start: 19990723
  13. DARVOCET [Concomitant]
     Dates: start: 19990723
  14. LEVOTHROID [Concomitant]
     Dates: start: 20041208
  15. ATENOLOL [Concomitant]
     Dates: start: 20041208
  16. TRILAFON [Concomitant]
     Dosage: 4 MG-16 MG
     Dates: start: 20041208
  17. PRILOSEC [Concomitant]
     Dosage: 20 MG-40 MG
     Route: 048
     Dates: start: 20040610
  18. CLARINEX [Concomitant]
     Dates: start: 20041208
  19. ZOCOR [Concomitant]
     Indication: HYPERCHOLESTEROLAEMIA
     Dosage: 20 MG-100 MG
     Dates: start: 20040610
  20. AMBIEN [Concomitant]
     Dosage: 5 MG-10 MG
     Dates: start: 20040610, end: 20041222
  21. SKELAXIN [Concomitant]
     Indication: MUSCLE SPASMS
     Dates: start: 20040610
  22. CORMAX [Concomitant]
     Dates: start: 20040610
  23. TRILEPTAL [Concomitant]
     Dosage: 300 MG-900 MG
     Dates: start: 20040610
  24. WELLBUTRIN SR [Concomitant]
     Dates: start: 20040610
  25. XANAX [Concomitant]
     Dosage: 0.25 MG AS NECESSARY
     Dates: start: 20040610

REACTIONS (6)
  - BLOOD CHOLESTEROL INCREASED [None]
  - DIABETES MELLITUS [None]
  - DIABETES MELLITUS INADEQUATE CONTROL [None]
  - HYPERGLYCAEMIA [None]
  - TYPE 2 DIABETES MELLITUS [None]
  - WEIGHT INCREASED [None]
